FAERS Safety Report 12781835 (Version 1)
Quarter: 2016Q3

REPORT INFORMATION
  Report Type: Spontaneous
  Country: PR (occurrence: PR)
  Receive Date: 20160926
  Receipt Date: 20160926
  Transmission Date: 20161109
  Serious: Yes (Other)
  Sender: FDA-Public Use
  Company Number: PR-ABBVIE-16P-131-1737674-00

PATIENT
  Sex: Female

DRUGS (1)
  1. LUPRON DEPOT [Suspect]
     Active Substance: LEUPROLIDE ACETATE
     Indication: ENDOMETRIOSIS
     Route: 030
     Dates: start: 2014

REACTIONS (8)
  - Ovarian disorder [Unknown]
  - Vaginal haemorrhage [Unknown]
  - Leiomyoma [Recovered/Resolved]
  - Menstrual disorder [Unknown]
  - Endometriosis [Recovering/Resolving]
  - Pelvic pain [Recovering/Resolving]
  - Endometriosis [Recovered/Resolved]
  - Abdominal pain [Recovering/Resolving]

NARRATIVE: CASE EVENT DATE: 2014
